FAERS Safety Report 15806084 (Version 3)
Quarter: 2019Q1

REPORT INFORMATION
  Report Type: Spontaneous
  Country: CH (occurrence: CH)
  Receive Date: 20190110
  Receipt Date: 20190228
  Transmission Date: 20190417
  Serious: Yes (Other)
  Sender: FDA-Public Use
  Company Number: CH-SAKK-2019SA004067AA

PATIENT
  Age: 41 Year
  Sex: Male
  Weight: 115 kg

DRUGS (4)
  1. AMILORIDE [Concomitant]
     Active Substance: AMILORIDE
  2. PRALUENT [Suspect]
     Active Substance: ALIROCUMAB
     Indication: HYPERCHOLESTEROLAEMIA
     Dosage: 150 MG, QOW
     Route: 058
     Dates: start: 20180312, end: 201807
  3. RAMIPRIL. [Concomitant]
     Active Substance: RAMIPRIL
  4. ASPIRIN CARDIO [Concomitant]
     Active Substance: ASPIRIN

REACTIONS (1)
  - Glomerulonephritis membranous [Recovered/Resolved with Sequelae]

NARRATIVE: CASE EVENT DATE: 20180401
